FAERS Safety Report 24073423 (Version 2)
Quarter: 2024Q3

REPORT INFORMATION
  Report Type: Report from Study
  Country: GR (occurrence: GR)
  Receive Date: 20240710
  Receipt Date: 20240712
  Transmission Date: 20241017
  Serious: Yes (Other)
  Sender: NOVARTIS
  Company Number: GR-002147023-NVSC2024GR140181

PATIENT
  Age: 54 Year
  Sex: Female

DRUGS (1)
  1. KESIMPTA [Suspect]
     Active Substance: OFATUMUMAB
     Indication: Relapsing multiple sclerosis
     Dosage: 1 DOSAGE FORM, QMO
     Route: 058

REACTIONS (6)
  - Eclampsia [Unknown]
  - Epilepsy [Unknown]
  - Pain [Unknown]
  - Vomiting [Unknown]
  - Decreased immune responsiveness [Unknown]
  - Infection [Unknown]
